FAERS Safety Report 12439419 (Version 2)
Quarter: 2016Q3

REPORT INFORMATION
  Report Type: Spontaneous
  Country: US (occurrence: US)
  Receive Date: 20160606
  Receipt Date: 20160930
  Transmission Date: 20161109
  Serious: No
  Sender: FDA-Public Use
  Company Number: US-ASTRAZENECA-2016SE58946

PATIENT
  Sex: Female

DRUGS (1)
  1. TUDORZA PRESSAIR [Suspect]
     Active Substance: ACLIDINIUM BROMIDE
     Dosage: 1 PUFF IN THE MORNING AND ONE AT NIGHT
     Route: 055

REACTIONS (3)
  - Device issue [Unknown]
  - Drug dose omission [Unknown]
  - Product label issue [Unknown]
